FAERS Safety Report 17158339 (Version 9)
Quarter: 2024Q3

REPORT INFORMATION
  Report Type: Spontaneous
  Country: US (occurrence: US)
  Receive Date: 20191216
  Receipt Date: 20240801
  Transmission Date: 20241017
  Serious: Yes (Death)
  Sender: PFIZER
  Company Number: US-PFIZER INC-2019537876

PATIENT
  Age: 89 Year
  Sex: Male
  Weight: 73.48 kg

DRUGS (3)
  1. VYNDAMAX [Suspect]
     Active Substance: TAFAMIDIS
     Indication: Amyloidosis
     Dosage: 61 MG, DAILY
     Route: 048
     Dates: start: 20191116
  2. POTASSIUM CHLORIDE [Concomitant]
     Active Substance: POTASSIUM CHLORIDE
     Indication: Amyloidosis
     Dosage: UNK
     Dates: start: 20191221
  3. TORSEMIDE [Concomitant]
     Active Substance: TORSEMIDE
     Indication: Amyloidosis
     Dosage: 10 MG
     Dates: start: 20190801

REACTIONS (3)
  - Death [Fatal]
  - Blood potassium increased [Not Recovered/Not Resolved]
  - Lethargy [Not Recovered/Not Resolved]

NARRATIVE: CASE EVENT DATE: 20201201
